FAERS Safety Report 9331366 (Version 1)
Quarter: 2013Q2

REPORT INFORMATION
  Report Type: Spontaneous
  Country: AU (occurrence: AU)
  Receive Date: 20130605
  Receipt Date: 20130605
  Transmission Date: 20140414
  Serious: Yes (Disabling)
  Sender: FDA-Public Use
  Company Number: AU-009507513-1306AUS000402

PATIENT
  Age: 35 Year
  Sex: Female
  Weight: 78 kg

DRUGS (1)
  1. CELESTONE [Suspect]
     Dosage: 1 MILLIGRAM, 1 TIME
     Dates: start: 20130308

REACTIONS (1)
  - Insomnia [Not Recovered/Not Resolved]
